FAERS Safety Report 5627096-3 (Version None)
Quarter: 2008Q1

REPORT INFORMATION
  Report Type: 
  Country: None (occurrence: None)
  Receive Date: 20080118
  Receipt Date: 20071102
  Transmission Date: 20080703
  Serious: No
  Sender: FDA-Public Use
  Company Number: 2007-BP-22606BP

PATIENT

DRUGS (1)
  1. APTIVUS [Suspect]
     Indication: HIV INFECTION
     Dosage: (SEE TEXT.TPV/R 250MG/100MG),PO
     Route: 048

REACTIONS (1)
  - ALOPECIA [None]
